FAERS Safety Report 21591588 (Version 3)
Quarter: 2023Q1

REPORT INFORMATION
  Report Type: Report from Study
  Country: ES (occurrence: ES)
  Receive Date: 20221114
  Receipt Date: 20230218
  Transmission Date: 20230418
  Serious: Yes (Hospitalization)
  Sender: FDA-Public Use
  Company Number: ES-ABBVIE-4165828

PATIENT
  Age: 62 Year
  Sex: Female
  Weight: 84 kg

DRUGS (14)
  1. HUMIRA [Suspect]
     Active Substance: ADALIMUMAB
     Indication: Colitis ulcerative
     Route: 058
     Dates: start: 20170713, end: 20180119
  2. HUMIRA [Suspect]
     Active Substance: ADALIMUMAB
     Route: 058
     Dates: start: 20170518, end: 20170712
  3. USTEKINUMAB [Concomitant]
     Active Substance: USTEKINUMAB
     Indication: Product used for unknown indication
     Route: 058
     Dates: start: 20210514
  4. BUDESONIDE [Concomitant]
     Active Substance: BUDESONIDE
     Indication: Hepatitis
     Route: 048
     Dates: start: 20190221
  5. ENTYVIO [Concomitant]
     Active Substance: VEDOLIZUMAB
     Indication: Colitis ulcerative
     Dosage: WEEK 0, 2, 6 AFETER EVERY 8 WEEKS
     Route: 041
     Dates: start: 20200619
  6. METHOTREXATE [Concomitant]
     Active Substance: METHOTREXATE
     Indication: Colitis ulcerative
     Route: 048
     Dates: start: 20200130
  7. SIMVASTATIN [Concomitant]
     Active Substance: SIMVASTATIN
     Indication: Colitis ulcerative
     Route: 048
     Dates: start: 20170920
  8. SULFASALAZINE [Concomitant]
     Active Substance: SULFASALAZINE
     Indication: Colitis ulcerative
     Dosage: TIME INTERVAL: 0.33333333 DAYS
     Route: 048
     Dates: start: 20181108, end: 20230110
  9. ASACOL [Concomitant]
     Active Substance: MESALAMINE
     Indication: Colitis ulcerative
     Route: 054
     Dates: start: 20130611
  10. ASACOL [Concomitant]
     Active Substance: MESALAMINE
     Indication: Colitis ulcerative
     Route: 048
     Dates: start: 20140526, end: 20181108
  11. MASTICAL D UNIDIA [Concomitant]
     Indication: Colitis ulcerative
     Dosage: 2500/800 MILLIGRAM
     Route: 048
     Dates: start: 20220914
  12. LANSOPRAZOLE [Concomitant]
     Active Substance: LANSOPRAZOLE
     Indication: Colitis ulcerative
     Route: 048
     Dates: start: 20201014
  13. INFLIXIMAB [Concomitant]
     Active Substance: INFLIXIMAB
     Indication: Colitis ulcerative
     Route: 042
     Dates: start: 20180313, end: 20181108
  14. OMEPRAZOLE [Concomitant]
     Active Substance: OMEPRAZOLE
     Indication: Colitis ulcerative
     Route: 048
     Dates: start: 20151008, end: 20201014

REACTIONS (1)
  - Goitre [Not Recovered/Not Resolved]

NARRATIVE: CASE EVENT DATE: 20180712
